FAERS Safety Report 15508305 (Version 2)
Quarter: 2019Q1

REPORT INFORMATION
  Report Type: Spontaneous
  Country: GR (occurrence: GR)
  Receive Date: 20181016
  Receipt Date: 20190124
  Transmission Date: 20190417
  Serious: Yes (Hospitalization, Other)
  Sender: FDA-Public Use
  Company Number: GR-MYLANLABS-2018M1075479

PATIENT
  Age: 44 Year
  Sex: Female

DRUGS (5)
  1. CAPECITABINE. [Suspect]
     Active Substance: CAPECITABINE
     Indication: COLORECTAL CANCER METASTATIC
     Dosage: 1250 MILLIGRAM/SQ. METER, QD
     Route: 065
  2. BRIVUDINE [Interacting]
     Active Substance: BRIVUDINE
     Indication: PRODUCT USED FOR UNKNOWN INDICATION
     Dosage: 125 MILLIGRAM, QD
     Route: 065
  3. CAPECITABINE. [Interacting]
     Active Substance: CAPECITABINE
     Indication: COLON CANCER METASTATIC
  4. BEVACIZUMAB. [Interacting]
     Active Substance: BEVACIZUMAB
     Indication: COLORECTAL CANCER METASTATIC
     Dosage: 7.5 MILLIGRAM/KILOGRAM, Q21D
     Route: 065
  5. BEVACIZUMAB. [Interacting]
     Active Substance: BEVACIZUMAB
     Indication: COLON CANCER METASTATIC

REACTIONS (9)
  - Neutropenia [Recovered/Resolved]
  - Alopecia [Recovered/Resolved]
  - Stomatitis [Recovered/Resolved]
  - Oesophagitis [Recovered/Resolved]
  - Labelled drug-drug interaction medication error [Recovered/Resolved]
  - Anaemia [Recovered/Resolved]
  - Diarrhoea [Recovered/Resolved]
  - Rash maculo-papular [Recovered/Resolved]
  - Thrombocytopenia [Recovered/Resolved]
